FAERS Safety Report 16662338 (Version 1)
Quarter: 2019Q3

REPORT INFORMATION
  Report Type: Report from Study
  Country: PK (occurrence: PK)
  Receive Date: 20190802
  Receipt Date: 20190802
  Transmission Date: 20191004
  Serious: Yes (Death)
  Sender: FDA-Public Use
  Company Number: PHHY2019PK179644

PATIENT
  Age: 43 Year
  Sex: Male
  Weight: 85 kg

DRUGS (1)
  1. TASIGNA [Suspect]
     Active Substance: NILOTINIB
     Indication: CHRONIC MYELOID LEUKAEMIA
     Dosage: 2 DF, BID (800 MG)
     Route: 048
     Dates: start: 20170911

REACTIONS (1)
  - Death [Fatal]

NARRATIVE: CASE EVENT DATE: 20190527
